FAERS Safety Report 6689252-5 (Version None)
Quarter: 2010Q2

REPORT INFORMATION
  Report Type: 
  Country: None (occurrence: None)
  Receive Date: 20100420
  Receipt Date: 20100412
  Transmission Date: 20101027
  Serious: Yes (Disabling)
  Sender: FDA-Public Use
  Company Number: US-MERCK-1001USA01810

PATIENT
  Age: 71 Year
  Sex: Female
  Weight: 56 kg

DRUGS (3)
  1. FOSAMAX [Suspect]
     Indication: OSTEOPOROSIS
     Route: 048
     Dates: start: 20010101, end: 20080101
  2. CALCIUM (UNSPECIFIED) [Concomitant]
     Route: 065
  3. VITAMIN D (UNSPECIFIED) [Concomitant]
     Route: 065

REACTIONS (8)
  - DENTAL CARIES [None]
  - FISTULA DISCHARGE [None]
  - GINGIVAL BLEEDING [None]
  - IMPAIRED HEALING [None]
  - JAW DISORDER [None]
  - ORAL INFECTION [None]
  - OSTEONECROSIS [None]
  - TOOTH ABSCESS [None]
